FAERS Safety Report 5518073-1 (Version None)
Quarter: 2007Q4

REPORT INFORMATION
  Report Type: 
  Country: None (occurrence: None)
  Receive Date: 20071115
  Receipt Date: 20071106
  Transmission Date: 20080405
  Serious: Yes (Hospitalization)
  Sender: FDA-Public Use
  Company Number: JP-ELI_LILLY_AND_COMPANY-JP200711001454

PATIENT
  Sex: Male
  Weight: 60.15 kg

DRUGS (16)
  1. PEMETREXED [Suspect]
     Indication: PLEURAL MESOTHELIOMA MALIGNANT
     Dosage: 800 MG, OTHER
     Route: 042
     Dates: start: 20070806
  2. CISPLATIN [Suspect]
     Indication: PLEURAL MESOTHELIOMA MALIGNANT
     Dosage: 120 MG, OTHER
     Route: 042
     Dates: start: 20070806, end: 20070806
  3. PANVITAN [Concomitant]
     Dosage: 1 G, DAILY (1/D)
     Route: 048
     Dates: start: 20070730, end: 20070924
  4. METHYCOBAL [Concomitant]
     Dosage: 1 MG, DAILY (1/D)
     Route: 030
     Dates: start: 20070730, end: 20070730
  5. METOCLOPRAMIDE HCL [Concomitant]
     Indication: NAUSEA
     Dosage: 10 MG, DAILY (1/D)
     Route: 048
     Dates: start: 20070807, end: 20070810
  6. METOCLOPRAMIDE HCL [Concomitant]
     Dosage: 30 MG, DAILY (1/D)
     Route: 042
     Dates: start: 20070809, end: 20070813
  7. METOCLOPRAMIDE HCL [Concomitant]
     Dosage: 10 MG, DAILY (1/D)
     Route: 042
     Dates: start: 20070809, end: 20070809
  8. LIORESAL [Concomitant]
     Indication: NAUSEA
     Dosage: 5 MG, DAILY (1/D)
     Route: 048
     Dates: start: 20070809, end: 20070816
  9. POLARAMINE [Concomitant]
     Indication: NAUSEA
     Dosage: 2 MG, DAILY (1/D)
     Route: 048
     Dates: start: 20070807, end: 20070810
  10. LACTEC G [Concomitant]
     Indication: NAUSEA
     Dosage: 500 ML, DAILY (1/D)
     Route: 042
     Dates: start: 20070809, end: 20070813
  11. LACTEC G [Concomitant]
     Dosage: 2000 ML, DAILY (1/D)
     Route: 042
     Dates: start: 20070814, end: 20070816
  12. LACTEC G [Concomitant]
     Dosage: 500 ML, DAILY (1/D)
     Route: 042
     Dates: start: 20070816, end: 20070817
  13. SOLDEM 3A [Concomitant]
     Indication: NAUSEA
     Dosage: 500 ML, DAILY (1/D)
     Route: 042
     Dates: start: 20070810, end: 20070813
  14. BUSCOPAN [Concomitant]
     Indication: ABDOMINAL PAIN UPPER
     Dosage: 20 MG, DAILY (1/D)
     Route: 042
     Dates: start: 20070810, end: 20070811
  15. FAMOTIDINE [Concomitant]
     Indication: ABDOMINAL PAIN UPPER
     Dosage: 40 MG, DAILY (1/D)
     Route: 048
     Dates: start: 20070811, end: 20070814
  16. FAMOTIDINE [Concomitant]
     Dosage: 40 MG, DAILY (1/D)
     Route: 042
     Dates: start: 20070811, end: 20070816

REACTIONS (1)
  - BLOOD SODIUM DECREASED [None]
